FAERS Safety Report 7601826-3 (Version None)
Quarter: 2011Q3

REPORT INFORMATION
  Report Type: 
  Country: None (occurrence: None)
  Receive Date: 20110711
  Receipt Date: 20110701
  Transmission Date: 20111222
  Serious: Yes (Hospitalization, Other)
  Sender: FDA-Public Use
  Company Number: US-ASTRAZENECA-2009SE10875

PATIENT
  Age: 25663 Day
  Sex: Male
  Weight: 75 kg

DRUGS (12)
  1. EPLERENONE [Interacting]
     Indication: CARDIAC FAILURE
     Route: 048
     Dates: start: 20081006, end: 20081102
  2. METOPROLOL TARTRATE [Suspect]
     Dates: end: 20090626
  3. VALSARTAN [Concomitant]
  4. EPLERENONE [Interacting]
     Route: 048
     Dates: start: 20081103, end: 20090625
  5. EFFEXOR [Concomitant]
  6. FUROSEMIDE [Interacting]
     Indication: CARDIAC FAILURE
     Route: 048
     Dates: start: 20080201, end: 20090625
  7. ASPIRIN [Concomitant]
  8. SPIRIVA [Concomitant]
  9. LISINOPRIL [Suspect]
     Route: 048
     Dates: end: 20090626
  10. ISOSORBIDE MONONITRATE [Concomitant]
  11. THYRAX [Concomitant]
  12. METFORMIN HCL [Concomitant]

REACTIONS (3)
  - MALAISE [None]
  - RENAL IMPAIRMENT [None]
  - CARDIAC FAILURE [None]
